FAERS Safety Report 10185750 (Version 1)
Quarter: 2014Q2

REPORT INFORMATION
  Report Type: Report from Study
  Country: US (occurrence: US)
  Receive Date: 20140521
  Receipt Date: 20140521
  Transmission Date: 20141212
  Serious: Yes (Death)
  Sender: FDA-Public Use
  Company Number: PHEH2014US010139

PATIENT
  Sex: Male

DRUGS (1)
  1. NEORAL [Suspect]
     Indication: ORGAN TRANSPLANT
     Dosage: 125 MG, BID
     Route: 048
     Dates: start: 20130624

REACTIONS (1)
  - Death [Fatal]
